FAERS Safety Report 4425302-4 (Version None)
Quarter: 2004Q3

REPORT INFORMATION
  Report Type: 
  Country: None (occurrence: None)
  Receive Date: 20040812
  Receipt Date: 20040812
  Transmission Date: 20050211
  Serious: Yes (Other)
  Sender: FDA-Public Use
  Company Number: None

PATIENT
  Age: 48 Year
  Sex: Female
  Weight: 64.4108 kg

DRUGS (2)
  1. WELLBUTRIN XL [Suspect]
     Indication: DEPRESSION
     Dosage: 150 MG DAILY X 1 WK 300 MG DAILY X 3 WKS
  2. WELLBUTRIN XL [Suspect]
     Indication: EX-SMOKER
     Dosage: 150 MG DAILY X 1 WK 300 MG DAILY X 3 WKS

REACTIONS (1)
  - TINNITUS [None]
